FAERS Safety Report 6585530-9 (Version None)
Quarter: 2010Q1

REPORT INFORMATION
  Report Type: 
  Country: None (occurrence: None)
  Receive Date: 20100201
  Receipt Date: 20090720
  Transmission Date: 20100710
  Serious: Yes (Hospitalization)
  Sender: FDA-Public Use
  Company Number: 8049200

PATIENT
  Sex: Male

DRUGS (5)
  1. KEPPRA [Suspect]
     Indication: GLIOBLASTOMA
     Dosage: (500 MG BID ORAL)
     Route: 048
  2. KEPPRA [Suspect]
     Indication: CONVULSION
     Dosage: (1500 MG BID INTRAVENOUS (NOT OTHERWISE SPECIFIED)
     Route: 042
  3. KEPPRA [Suspect]
     Indication: GLIOBLASTOMA
     Dosage: (1500 MG BID INTRAVENOUS (NOT OTHERWISE SPECIFIED)
     Route: 042
  4. PHENYTOIN [Concomitant]
  5. DEPAKENE [Concomitant]

REACTIONS (1)
  - CONVULSION [None]
